FAERS Safety Report 7258316-X (Version None)
Quarter: 2011Q1

REPORT INFORMATION
  Report Type: 
  Country: None (occurrence: None)
  Receive Date: 20110129
  Receipt Date: 20100728
  Transmission Date: 20110831
  Serious: No
  Sender: FDA-Public Use
  Company Number: US-ABBOTT-10P-163-0660493-00

PATIENT
  Age: 52 Year
  Sex: Female

DRUGS (5)
  1. ELESTRIN GEL 0.06% [Concomitant]
     Indication: PRODUCT USED FOR UNKNOWN INDICATION
     Dosage: 2 SQUIRTS ON ARM ONCE DAILY
  2. HUMIRA [Suspect]
     Indication: PSORIASIS
     Dates: start: 20080601
  3. ASPIRIN [Concomitant]
     Indication: PRODUCT USED FOR UNKNOWN INDICATION
     Route: 048
  4. LISINOPRIL [Concomitant]
     Indication: HYPERTENSION
     Route: 048
  5. PROMETRIUM [Concomitant]
     Indication: PRODUCT USED FOR UNKNOWN INDICATION
     Route: 048

REACTIONS (4)
  - PSORIASIS [None]
  - BLISTER [None]
  - SKIN FISSURES [None]
  - PAIN IN EXTREMITY [None]
